FAERS Safety Report 24671590 (Version 1)
Quarter: 2024Q4

REPORT INFORMATION
  Report Type: Report from Study
  Country: US (occurrence: US)
  Receive Date: 20241127
  Receipt Date: 20241127
  Transmission Date: 20250114
  Serious: Yes (Other)
  Sender: PFIZER
  Company Number: US-PFIZER INC-202400308481

PATIENT
  Age: 24 Year
  Sex: Female

DRUGS (2)
  1. DOXORUBICIN HYDROCHLORIDE [Suspect]
     Active Substance: DOXORUBICIN HYDROCHLORIDE
     Indication: Desmoid tumour
     Dosage: UNK, CYCLIC (4 CYCLES)
  2. DACARBAZINE [Suspect]
     Active Substance: DACARBAZINE
     Indication: Desmoid tumour
     Dosage: UNK, CYCLIC (4 CYCLES)

REACTIONS (4)
  - Anaemia [Unknown]
  - Vomiting [Unknown]
  - Stomatitis [Unknown]
  - Fatigue [Unknown]
